FAERS Safety Report 4341508-7 (Version None)
Quarter: 2004Q2

REPORT INFORMATION
  Report Type: 
  Country: None (occurrence: None)
  Receive Date: 20040415
  Receipt Date: 20040406
  Transmission Date: 20050107
  Serious: Yes (Hospitalization)
  Sender: FDA-Public Use
  Company Number: 2004-04-0281

PATIENT
  Age: 36 Year
  Sex: Male

DRUGS (2)
  1. REBETOL [Suspect]
     Indication: HEPATITIS C
     Dosage: ORAL
     Route: 048
     Dates: start: 20040405
  2. INTRON A [Suspect]
     Indication: HEPATITIS C
     Dosage: SUBCUTANEOUS
     Route: 058
     Dates: start: 20040405

REACTIONS (1)
  - PULMONARY EMBOLISM [None]
